FAERS Safety Report 4285854-4 (Version None)
Quarter: 2004Q1

REPORT INFORMATION
  Report Type: 
  Country: None (occurrence: None)
  Receive Date: 20040203
  Receipt Date: 20040123
  Transmission Date: 20041129
  Serious: Yes (Death)
  Sender: FDA-Public Use
  Company Number: BE-JNJFOC-20040104746

PATIENT
  Age: 95 Year
  Sex: Female

DRUGS (1)
  1. CISAPRIDE (CISAPRIDE) [Suspect]
     Indication: IMPAIRED GASTRIC EMPTYING
     Dosage: 20 MG, 2 IN 1 DAY
     Dates: start: 20030612

REACTIONS (1)
  - DEATH [None]
